FAERS Safety Report 21738564 (Version 3)
Quarter: 2023Q1

REPORT INFORMATION
  Report Type: Report from Study
  Country: US (occurrence: US)
  Receive Date: 20221216
  Receipt Date: 20230206
  Transmission Date: 20230418
  Serious: Yes (Other)
  Sender: FDA-Public Use
  Company Number: US-JNJFOC-20220860412

PATIENT
  Age: 79 Year
  Sex: Female
  Weight: 72.6 kg

DRUGS (16)
  1. MACITENTAN [Suspect]
     Active Substance: MACITENTAN
     Indication: Pulmonary arterial hypertension
     Route: 048
     Dates: start: 202206
  2. MACITENTAN [Suspect]
     Active Substance: MACITENTAN
     Route: 048
     Dates: start: 202207
  3. MACITENTAN [Suspect]
     Active Substance: MACITENTAN
     Route: 048
     Dates: start: 202208
  4. TYVASO [Suspect]
     Active Substance: TREPROSTINIL
     Indication: Pulmonary arterial hypertension
     Dosage: 60UG (10 BREATHS)
     Route: 055
     Dates: start: 20210503
  5. TYVASO [Suspect]
     Active Substance: TREPROSTINIL
     Dosage: WEAK FIRST-3 PUFFS 4 TIMES A DAY, WEAK TWO-6 PUFFS 4 TIMES A DAY AND WEAK THIRD-9 PUFFS 4 TIMES A DA
     Route: 055
  6. ELIQUIS [Concomitant]
     Active Substance: APIXABAN
     Dosage: 2 TABLET PER DAY
  7. SILDENAFIL CITRATE [Concomitant]
     Active Substance: SILDENAFIL CITRATE
     Dosage: 1 TABLET THREE TIMES A DAY
  8. AMLODIPINE BESYLATE [Concomitant]
     Active Substance: AMLODIPINE BESYLATE
  9. SPIRIVA [Concomitant]
     Active Substance: TIOTROPIUM BROMIDE MONOHYDRATE
     Dosage: ONE PUFF PER DAY
  10. ALBUTEROL SULFATE [Concomitant]
     Active Substance: ALBUTEROL SULFATE
  11. SPIRONOLACTONE [Concomitant]
     Active Substance: SPIRONOLACTONE
     Dosage: 1/2 PER DAY
  12. LEVOTHYROXINE [Concomitant]
     Active Substance: LEVOTHYROXINE
     Dosage: 1 PER DAY
  13. OMEPRAZOLE [Concomitant]
     Active Substance: OMEPRAZOLE
     Dosage: 1 PER DAY
  14. LIPITOR [Concomitant]
     Active Substance: ATORVASTATIN CALCIUM
     Dosage: 1 PER DAY
  15. FOSINOPRIL [Concomitant]
     Active Substance: FOSINOPRIL
     Dosage: 1 PER DAY
  16. METOPROLOL TARTRATE [Concomitant]
     Active Substance: METOPROLOL TARTRATE
     Dosage: 3 PER DAY

REACTIONS (8)
  - Epistaxis [Unknown]
  - Headache [Not Recovered/Not Resolved]
  - Nasal congestion [Unknown]
  - Chromaturia [Not Recovered/Not Resolved]
  - Fatigue [Unknown]
  - Oedema peripheral [Unknown]
  - Weight increased [Unknown]
  - Dyspnoea [Unknown]

NARRATIVE: CASE EVENT DATE: 20220601
